FAERS Safety Report 13889607 (Version 7)
Quarter: 2019Q4

REPORT INFORMATION
  Report Type: Report from Study
  Country: US (occurrence: US)
  Receive Date: 20170822
  Receipt Date: 20191105
  Transmission Date: 20200122
  Serious: Yes (Other)
  Sender: FDA-Public Use
  Company Number: PHHY2017US121790

PATIENT
  Age: 59 Year
  Sex: Female

DRUGS (1)
  1. GILENYA [Suspect]
     Active Substance: FINGOLIMOD HYDROCHLORIDE
     Indication: MULTIPLE SCLEROSIS
     Dosage: QD
     Route: 048

REACTIONS (18)
  - White blood cell count decreased [Unknown]
  - Muscle spasms [Recovered/Resolved]
  - Constipation [Unknown]
  - Arthralgia [Recovered/Resolved]
  - Lymphocyte count decreased [Unknown]
  - Cough [Recovered/Resolved]
  - Fall [Recovered/Resolved]
  - Dizziness [Recovered/Resolved]
  - Extra dose administered [Recovered/Resolved]
  - Seborrhoeic dermatitis [Unknown]
  - Scar [Unknown]
  - Back pain [Recovered/Resolved]
  - Urinary tract infection [Recovered/Resolved]
  - Seborrhoeic keratosis [Unknown]
  - Neuroma [Recovered/Resolved]
  - Actinic keratosis [Unknown]
  - Melanocytic naevus [Unknown]
  - Hyperhidrosis [Unknown]

NARRATIVE: CASE EVENT DATE: 20170302
